FAERS Safety Report 21820903 (Version 2)
Quarter: 2023Q1

REPORT INFORMATION
  Report Type: Spontaneous
  Country: US (occurrence: US)
  Receive Date: 20230105
  Receipt Date: 20230321
  Transmission Date: 20230418
  Serious: No
  Sender: FDA-Public Use
  Company Number: US-BIOGEN-2023BI01179050

PATIENT
  Sex: Female

DRUGS (1)
  1. PLEGRIDY [Suspect]
     Active Substance: PEGINTERFERON BETA-1A
     Indication: Multiple sclerosis
     Route: 050
     Dates: start: 20200608

REACTIONS (4)
  - Drug dose omission by device [Not Recovered/Not Resolved]
  - Drug delivery system malfunction [Unknown]
  - Memory impairment [Recovered/Resolved]
  - Anxiety [Recovered/Resolved]
